FAERS Safety Report 6746845-4 (Version None)
Quarter: 2010Q2

REPORT INFORMATION
  Report Type: 
  Country: None (occurrence: None)
  Receive Date: 20100528
  Receipt Date: 20100413
  Transmission Date: 20101027
  Serious: No
  Sender: FDA-Public Use
  Company Number: A0851604A

PATIENT
  Age: 15 Year
  Sex: Female
  Weight: 62.3 kg

DRUGS (2)
  1. VENTOLIN [Suspect]
     Indication: ASTHMA
     Dosage: 7SPR SINGLE DOSE
     Route: 061
  2. ADVAIR DISKUS 100/50 [Concomitant]

REACTIONS (7)
  - ABNORMAL BEHAVIOUR [None]
  - DEVICE MISUSE [None]
  - DRUG ADMINISTRATION ERROR [None]
  - EXCORIATION [None]
  - SKIN HYPERPIGMENTATION [None]
  - SKIN HYPOPIGMENTATION [None]
  - THERMAL BURN [None]
